FAERS Safety Report 18993757 (Version 1)
Quarter: 2021Q1

REPORT INFORMATION
  Report Type: Report from Study
  Country: None (occurrence: US)
  Receive Date: 20210311
  Receipt Date: 20210311
  Transmission Date: 20210420
  Serious: Yes (Death, Hospitalization, Other)
  Sender: FDA-Public Use
  Company Number: US-ABBVIE-21K-163-3808105-00

PATIENT
  Age: 75 Year
  Sex: Female
  Weight: 78.09 kg

DRUGS (1)
  1. CREON [Suspect]
     Active Substance: PANCRELIPASE AMYLASE\PANCRELIPASE LIPASE\PANCRELIPASE PROTEASE
     Indication: PANCREATIC FAILURE
     Dosage: ONE CAPSULET BEFORE SNACKS AND TWO TO THREE CAPSULE PER MEAL
     Route: 048
     Dates: start: 201911, end: 202101

REACTIONS (4)
  - Pancreatic carcinoma metastatic [Fatal]
  - Abdominal distension [Not Recovered/Not Resolved]
  - Loss of consciousness [Recovered/Resolved]
  - Fluid retention [Not Recovered/Not Resolved]

NARRATIVE: CASE EVENT DATE: 202012
